FAERS Safety Report 14777173 (Version 2)
Quarter: 2018Q2

REPORT INFORMATION
  Report Type: Spontaneous
  Country: US (occurrence: US)
  Receive Date: 20180419
  Receipt Date: 20180422
  Transmission Date: 20180711
  Serious: No
  Sender: FDA-Public Use
  Company Number: US-JNJFOC-20180336659

PATIENT
  Sex: Female

DRUGS (2)
  1. TYLENOL 8 HR ARTHRITIS PAIN [Suspect]
     Active Substance: ACETAMINOPHEN
     Indication: FIBROMYALGIA
     Route: 065
  2. TYLENOL 8 HR ARTHRITIS PAIN [Suspect]
     Active Substance: ACETAMINOPHEN
     Route: 065

REACTIONS (3)
  - Therapeutic response unexpected [Unknown]
  - Product use in unapproved indication [Unknown]
  - Off label use [Unknown]
